FAERS Safety Report 6583689-0 (Version None)
Quarter: 2010Q1

REPORT INFORMATION
  Report Type: 
  Country: None (occurrence: None)
  Receive Date: 20100213
  Receipt Date: 20100213
  Transmission Date: 20100710
  Serious: No
  Sender: FDA-Public Use
  Company Number: None

PATIENT
  Sex: Female

DRUGS (1)
  1. LISINOPRIL [Suspect]
     Indication: CARDIOVASCULAR EVENT PROPHYLAXIS
     Dosage: 5MG ONCE DAILY ORAL
     Route: 048
     Dates: start: 20100123, end: 20100210

REACTIONS (2)
  - CHEST PAIN [None]
  - COUGH [None]
